FAERS Safety Report 6032463-2 (Version None)
Quarter: 2009Q1

REPORT INFORMATION
  Report Type: 
  Country: None (occurrence: None)
  Receive Date: 20090107
  Receipt Date: 20081223
  Transmission Date: 20090719
  Serious: Yes (Hospitalization)
  Sender: FDA-Public Use
  Company Number: KV200801398

PATIENT
  Age: 75 Year
  Sex: Female

DRUGS (7)
  1. ISOSORBIDE MONONITRATE [Suspect]
     Indication: CARDIAC DISORDER
     Dosage: 60 MG, QD, ORAL
     Route: 048
     Dates: start: 20050101
  2. TRICOR [Concomitant]
  3. TOPROLOL (METOPROLOL SUCCINATE) [Concomitant]
  4. NORVASC [Concomitant]
  5. AMARYL [Concomitant]
  6. METOLAZONE [Concomitant]
  7. DIOVAN [Concomitant]

REACTIONS (4)
  - DEHYDRATION [None]
  - DIZZINESS EXERTIONAL [None]
  - HEART RATE DECREASED [None]
  - PRODUCT QUALITY ISSUE [None]
